FAERS Safety Report 4814516-7 (Version None)
Quarter: 2005Q4

REPORT INFORMATION
  Report Type: 
  Country: None (occurrence: None)
  Receive Date: 20051028
  Receipt Date: 20051014
  Transmission Date: 20060501
  Serious: Yes (Hospitalization)
  Sender: FDA-Public Use
  Company Number: CH-MERCK-0510CHE00015

PATIENT
  Age: 58 Year
  Sex: Male

DRUGS (12)
  1. PRIMAXIN [Suspect]
     Route: 042
     Dates: start: 20050818, end: 20050831
  2. CEFEPIME [Suspect]
     Route: 042
     Dates: start: 20050729, end: 20050817
  3. SULFAMETHOXAZOLE AND TRIMETHOPRIM [Suspect]
     Route: 048
     Dates: start: 20050714, end: 20050729
  4. BACTRIM [Suspect]
     Route: 041
     Dates: start: 20050730, end: 20050831
  5. METRONIDAZOLE [Suspect]
     Route: 048
     Dates: start: 20050826, end: 20050831
  6. AMPHOTERICIN B [Suspect]
     Route: 042
     Dates: start: 20050809, end: 20050815
  7. CANCIDAS [Suspect]
     Route: 042
     Dates: start: 20050811, end: 20050826
  8. ACYCLOVIR [Suspect]
     Route: 065
     Dates: start: 20050819, end: 20050822
  9. CYCLOPHOSPHAMIDE [Suspect]
     Route: 042
     Dates: start: 20050801, end: 20050802
  10. ASPARAGINASE (AS DRUG) [Suspect]
     Route: 042
     Dates: start: 20050802, end: 20050808
  11. VINCRISTINE SULFATE [Concomitant]
     Route: 042
     Dates: start: 20050801, end: 20050802
  12. DAUNORUBICIN HYDROCHLORIDE [Concomitant]
     Route: 042
     Dates: start: 20050801, end: 20050802

REACTIONS (2)
  - HEPATIC STEATOSIS [None]
  - HEPATITIS CHOLESTATIC [None]
